FAERS Safety Report 11630073 (Version 1)
Quarter: 2015Q4

REPORT INFORMATION
  Report Type: Spontaneous
  Country: US (occurrence: US)
  Receive Date: 20151014
  Receipt Date: 20151014
  Transmission Date: 20160304
  Serious: No
  Sender: FDA-Public Use
  Company Number: US-INDIVIOR-RB-080648-2015

PATIENT
  Age: 29 Year
  Sex: Male

DRUGS (2)
  1. ALCOHOL. [Suspect]
     Active Substance: ALCOHOL
     Indication: SOCIAL ALCOHOL DRINKER
     Dosage: 1 DRINK, EVERY WEEKEND
     Route: 048
  2. SUBOXONE [Suspect]
     Active Substance: BUPRENORPHINE HYDROCHLORIDE\NALOXONE HYDROCHLORIDE
     Indication: DRUG DEPENDENCE
     Dosage: 8 MG, BID
     Route: 060
     Dates: start: 2014

REACTIONS (5)
  - Alcohol abuse [Not Recovered/Not Resolved]
  - Somnolence [Not Recovered/Not Resolved]
  - Glassy eyes [Not Recovered/Not Resolved]
  - Product use issue [Not Recovered/Not Resolved]
  - Dysarthria [Not Recovered/Not Resolved]

NARRATIVE: CASE EVENT DATE: 2014
